FAERS Safety Report 24419498 (Version 2)
Quarter: 2024Q4

REPORT INFORMATION
  Report Type: Report from Study
  Country: US (occurrence: US)
  Receive Date: 20241010
  Receipt Date: 20241018
  Transmission Date: 20250114
  Serious: No
  Sender: ROCHE
  Company Number: US-ROCHE-3456989

PATIENT
  Age: 54 Year
  Sex: Male

DRUGS (5)
  1. ACTIVASE [Suspect]
     Active Substance: ALTEPLASE
     Indication: Vertebral artery aneurysm
     Dosage: DATE OF SERVICE 06/MAY/2023
     Route: 065
  2. TNKASE [Suspect]
     Active Substance: TENECTEPLASE
     Indication: Vertebral artery aneurysm
     Dosage: VIAL, DATE OF SERVICE: 21/OCT/2023
     Route: 065
  3. TNKASE [Suspect]
     Active Substance: TENECTEPLASE
     Indication: Vertebrobasilar artery dissection
  4. TNKASE [Suspect]
     Active Substance: TENECTEPLASE
     Indication: Nervous system disorder
  5. TNKASE [Suspect]
     Active Substance: TENECTEPLASE
     Indication: Cerebral infarction

REACTIONS (2)
  - Off label use [Unknown]
  - No adverse event [Unknown]
